FAERS Safety Report 4432450-1 (Version None)
Quarter: 2004Q3

REPORT INFORMATION
  Report Type: 
  Country: None (occurrence: None)
  Receive Date: 20040820
  Receipt Date: 20040813
  Transmission Date: 20050211
  Serious: Yes (Other)
  Sender: FDA-Public Use
  Company Number: 2004UW13084

PATIENT
  Age: 5 Year
  Sex: Female
  Weight: 59 kg

DRUGS (2)
  1. IRESSA [Suspect]
     Indication: BREAST CANCER
     Dosage: 250 MG QD PO
     Route: 048
     Dates: start: 20040226, end: 20040328
  2. TAXOTERE [Suspect]
     Indication: BREAST CANCER
     Dosage: 56 MG/M2 WEEK IV
     Route: 042
     Dates: start: 20040226, end: 20040315

REACTIONS (1)
  - HEPATOTOXICITY [None]
